FAERS Safety Report 8874429 (Version 1)
Quarter: 2012Q4

REPORT INFORMATION
  Report Type: 
  Country: JP (occurrence: JP)
  Receive Date: 20121031
  Receipt Date: 20121031
  Transmission Date: 20130627
  Serious: Yes (Hospitalization)
  Sender: FDA-Public Use
  Company Number: JP-009507513-1208JPN010493

PATIENT

DRUGS (1)
  1. FOSAMAC TABLETS-5 [Suspect]
     Indication: SPINAL COMPRESSION FRACTURE
     Dosage: Daily dosage unknown
     Route: 048
     Dates: start: 2006

REACTIONS (1)
  - Atypical femur fracture [Unknown]
